FAERS Safety Report 4822561-0 (Version None)
Quarter: 2005Q4

REPORT INFORMATION
  Report Type: 
  Country: None (occurrence: None)
  Receive Date: 20051104
  Receipt Date: 20051026
  Transmission Date: 20060501
  Serious: Yes (Life-Threatening, Congenital Anomaly)
  Sender: FDA-Public Use
  Company Number: 2005-10-1465

PATIENT
  Age: 1 Day
  Sex: Female
  Weight: 1.5 kg

DRUGS (8)
  1. CELESTENE (BETAMETHASONE)  ORAL, NOT OTHERWISE SPECIFIED ^LIKE CELESTO [Suspect]
     Indication: BRONCHITIS
     Dosage: 1DOSEFORM QID ORAL
     Route: 048
     Dates: start: 20050207, end: 20050214
  2. CELESTENE (BETAMETHASONE)  ORAL, NOT OTHERWISE SPECIFIED ^LIKE CELESTO [Suspect]
     Indication: RHINITIS
     Dosage: 1DOSEFORM QID ORAL
     Route: 048
     Dates: start: 20050207, end: 20050214
  3. DERINOX [Suspect]
     Indication: BRONCHITIS
     Dosage: 1DOSEFORMQID
     Dates: start: 20050207, end: 20050214
  4. DERINOX [Suspect]
     Indication: RHINITIS
     Dosage: 1DOSEFORMQID
     Dates: start: 20050207, end: 20050214
  5. TRIFLUCAN [Suspect]
     Indication: BRONCHITIS
     Dosage: 1DOSEFORM QD ORAL
     Route: 048
     Dates: start: 20050207, end: 20050214
  6. TRIFLUCAN [Suspect]
     Indication: RHINITIS
     Dosage: 1DOSEFORM QD ORAL
     Route: 048
     Dates: start: 20050207, end: 20050214
  7. IBUPROFEN [Suspect]
     Indication: BRONCHITIS
     Dosage: IDOSEFORM QID ORAL
     Route: 048
     Dates: start: 20050207, end: 20050214
  8. IBUPROFEN [Suspect]
     Indication: RHINITIS
     Dosage: IDOSEFORM QID ORAL
     Route: 048
     Dates: start: 20050207, end: 20050214

REACTIONS (24)
  - ADENOMA BENIGN [None]
  - ANAL ATRESIA [None]
  - ANOMALY OF EXTERNAL EAR CONGENITAL [None]
  - ANOMALY OF ORBIT, CONGENITAL [None]
  - CONGENITAL CENTRAL NERVOUS SYSTEM ANOMALY [None]
  - CONGENITAL JAW MALFORMATION [None]
  - CONGENITAL NOSE MALFORMATION [None]
  - CYST [None]
  - DRUG EXPOSURE DURING PREGNANCY [None]
  - ECHOGRAPHY ABNORMAL [None]
  - EYELID PTOSIS [None]
  - FACIAL DYSMORPHISM [None]
  - GASTROINTESTINAL MALFORMATION [None]
  - INTESTINAL ATRESIA [None]
  - INTESTINAL DILATATION [None]
  - KIDNEY MALFORMATION [None]
  - MULTIPLE CONGENITAL ABNORMALITIES [None]
  - NEONATAL DISORDER [None]
  - NERVOUS SYSTEM NEOPLASM BENIGN [None]
  - PREMATURE BABY [None]
  - PULMONARY MALFORMATION [None]
  - PYELOCALIECTASIS [None]
  - SMALL FOR DATES BABY [None]
  - URINARY TRACT MALFORMATION [None]
